FAERS Safety Report 24687828 (Version 1)
Quarter: 2024Q4

REPORT INFORMATION
  Report Type: Spontaneous
  Country: US (occurrence: US)
  Receive Date: 20241202
  Receipt Date: 20241202
  Transmission Date: 20250115
  Serious: No
  Sender: SANOFI AVENTIS
  Company Number: US-SANOFI-02315314

PATIENT
  Sex: Female

DRUGS (1)
  1. TUBERSOL [Suspect]
     Active Substance: TUBERCULIN PURIFIED PROTEIN DERIVATIVE
     Indication: Skin test
     Dosage: UNK
     Route: 065
     Dates: start: 20241118

REACTIONS (1)
  - Poor quality product administered [Unknown]

NARRATIVE: CASE EVENT DATE: 20241118
